FAERS Safety Report 20948775 (Version 1)
Quarter: 2022Q2

REPORT INFORMATION
  Report Type: Spontaneous
  Country: CN (occurrence: CN)
  Receive Date: 20220612
  Receipt Date: 20220612
  Transmission Date: 20220720
  Serious: Yes (Other)
  Sender: FDA-Public Use
  Company Number: CN-NOVARTISPH-NVSC2022CN131929

PATIENT
  Age: 35 Year
  Sex: Male

DRUGS (6)
  1. RISPERIDONE [Suspect]
     Active Substance: RISPERIDONE
     Indication: Affective disorder
     Dosage: 2 MG, QD
     Route: 065
  2. PAROXETINE [Suspect]
     Active Substance: PAROXETINE
     Indication: Affective disorder
     Dosage: 20 MG, QD
     Route: 065
  3. LORAZEPAM [Suspect]
     Active Substance: LORAZEPAM
     Indication: Affective disorder
     Dosage: 2 MG, QD
     Route: 065
  4. SUFENTANIL [Concomitant]
     Active Substance: SUFENTANIL
     Indication: Induction of anaesthesia
     Dosage: UNK, UNKNOWN, 8 MICROGRAM
     Route: 065
  5. ISOPROTERENOL [Concomitant]
     Active Substance: ISOPROTERENOL
     Indication: Induction of anaesthesia
     Dosage: 150 MG, UNKNOWN
     Route: 065
  6. SUCCINYLCHOLINE [Concomitant]
     Active Substance: SUCCINYLCHOLINE
     Indication: Induction of anaesthesia
     Dosage: 120 MG, UNKNOWN
     Route: 065

REACTIONS (2)
  - Neuroleptic malignant syndrome [Recovered/Resolved]
  - Product use in unapproved indication [Unknown]
